FAERS Safety Report 4348584-6 (Version None)
Quarter: 2004Q2

REPORT INFORMATION
  Report Type: 
  Country: None (occurrence: None)
  Receive Date: 20040423
  Receipt Date: 20040413
  Transmission Date: 20050107
  Serious: Yes (Hospitalization)
  Sender: FDA-Public Use
  Company Number: HQWYE501216APR04

PATIENT
  Age: 85 Year
  Sex: Female
  Weight: 64.3 kg

DRUGS (1)
  1. MYLOTARG [Suspect]
     Indication: ACUTE MYELOID LEUKAEMIA
     Dosage: 15.5 MG OVER 2 HOURS, INTRAVENOUS
     Route: 042
     Dates: start: 20040326, end: 20040326

REACTIONS (5)
  - BLOOD UREA INCREASED [None]
  - CELLULITIS [None]
  - DEEP VEIN THROMBOSIS [None]
  - HAEMOGLOBIN DECREASED [None]
  - WHITE BLOOD CELL COUNT DECREASED [None]
